FAERS Safety Report 11407474 (Version 2)
Quarter: 2018Q3

REPORT INFORMATION
  Report Type: Spontaneous
  Country: US (occurrence: US)
  Receive Date: 20150821
  Receipt Date: 20180921
  Transmission Date: 20181010
  Serious: No
  Sender: FDA-Public Use
  Company Number: US-NOVOPROD-431884

PATIENT
  Age: 53 Year
  Sex: Male

DRUGS (2)
  1. VICTOZA [Suspect]
     Active Substance: LIRAGLUTIDE
     Indication: TYPE 2 DIABETES MELLITUS
     Dosage: 1.2 MG, QD
     Route: 058
  2. VICTOZA [Suspect]
     Active Substance: LIRAGLUTIDE
     Dosage: UNK
     Route: 058

REACTIONS (5)
  - Skin texture abnormal [Not Recovered/Not Resolved]
  - Parosmia [Recovering/Resolving]
  - Dysgeusia [Recovering/Resolving]
  - Protein total abnormal [Not Recovered/Not Resolved]
  - Food aversion [Recovering/Resolving]
